FAERS Safety Report 19008944 (Version 1)
Quarter: 2021Q1

REPORT INFORMATION
  Report Type: Other
  Country: US (occurrence: US)
  Receive Date: 20210316
  Receipt Date: 20210316
  Transmission Date: 20210420
  Serious: Yes (Other)
  Sender: FDA-Public Use
  Company Number: US-INTERCEPT-PM2021000661

PATIENT
  Age: 70 Year
  Sex: Male

DRUGS (1)
  1. OCALIVA [Suspect]
     Active Substance: OBETICHOLIC ACID
     Indication: PRIMARY BILIARY CHOLANGITIS
     Dosage: 10 MILLIGRAM
     Route: 048
     Dates: start: 201904, end: 201904

REACTIONS (4)
  - Blood alkaline phosphatase abnormal [Recovered/Resolved]
  - Urinary tract disorder [Recovered/Resolved]
  - Drug ineffective [Recovered/Resolved]
  - Varices oesophageal [Recovered/Resolved]

NARRATIVE: CASE EVENT DATE: 201904
